FAERS Safety Report 6113086-3 (Version None)
Quarter: 2009Q1

REPORT INFORMATION
  Report Type: 
  Country: None (occurrence: None)
  Receive Date: 20090312
  Receipt Date: 20090304
  Transmission Date: 20090719
  Serious: Yes (Hospitalization)
  Sender: FDA-Public Use
  Company Number: JP-ASTRAZENECA-2009AP01724

PATIENT
  Age: 64 Year
  Sex: Female

DRUGS (1)
  1. CARBOCAIN INJECTION [Suspect]
     Indication: PAIN
     Route: 008

REACTIONS (2)
  - DIPLOPIA [None]
  - GAIT DISTURBANCE [None]
